FAERS Safety Report 16733853 (Version 1)
Quarter: 2019Q3

REPORT INFORMATION
  Report Type: Spontaneous
  Country: US (occurrence: US)
  Receive Date: 20190823
  Receipt Date: 20190823
  Transmission Date: 20191005
  Serious: Yes (Hospitalization, Other)
  Sender: FDA-Public Use
  Company Number: US-ACCORD-152677

PATIENT
  Age: 58 Year
  Sex: Male

DRUGS (2)
  1. MYCOPHENOLIC ACID. [Suspect]
     Active Substance: MYCOPHENOLIC ACID
     Indication: PROPHYLAXIS AGAINST TRANSPLANT REJECTION
     Dosage: INFUSED OVER TWO HOURS TWICE DAILY THROUGH A PERIPHERAL VENOUS ACCESS LINE
     Route: 041
  2. GLUCOSE [Concomitant]
     Active Substance: DEXTROSE
     Indication: PROPHYLAXIS AGAINST TRANSPLANT REJECTION
     Dosage: INFUSED OVER TWO HOURS TWICE DAILY THROUGH A PERIPHERAL VENOUS ACCESS LINE (5 % )
     Route: 041

REACTIONS (3)
  - Infusion site extravasation [Unknown]
  - Skin toxicity [Unknown]
  - Soft tissue necrosis [Unknown]
